FAERS Safety Report 7435730-0 (Version None)
Quarter: 2011Q2

REPORT INFORMATION
  Report Type: 
  Country: None (occurrence: None)
  Receive Date: 20110425
  Receipt Date: 20110414
  Transmission Date: 20111010
  Serious: Yes (Hospitalization, Other)
  Sender: FDA-Public Use
  Company Number: US-ELI_LILLY_AND_COMPANY-US201104005368

PATIENT
  Sex: Female
  Weight: 33.56 kg

DRUGS (8)
  1. SERTRALINE [Concomitant]
     Dosage: 100 MG, BID
  2. DICYCLOMINE [Concomitant]
     Indication: IRRITABLE BOWEL SYNDROME
     Dosage: 1 DF, UNK
  3. FORTEO [Suspect]
     Indication: OSTEOPOROSIS
     Dosage: 20 UG, QD
  4. GABAPENTIN [Concomitant]
     Indication: TREMOR
     Dosage: 300 MG, TID
  5. LEVOTHYROXINE SODIUM [Concomitant]
     Dosage: 100 UG, UNK
  6. EVISTA [Suspect]
     Indication: OSTEOPOROSIS
     Dosage: 60 MG, QD
  7. HYDROCODONE [Concomitant]
     Dosage: 1 DF, PRN
  8. CLONAZEPAM [Concomitant]
     Indication: NERVOUSNESS
     Dosage: 1 MG, QID

REACTIONS (6)
  - HIP FRACTURE [None]
  - INSOMNIA [None]
  - HYPOTENSION [None]
  - BONE PAIN [None]
  - FALL [None]
  - FRACTURE [None]
